FAERS Safety Report 10741508 (Version 1)
Quarter: 2015Q1

REPORT INFORMATION
  Report Type: Spontaneous
  Country: US (occurrence: US)
  Receive Date: 20150127
  Receipt Date: 20150127
  Transmission Date: 20150721
  Serious: Yes (Hospitalization)
  Sender: FDA-Public Use
  Company Number: US-PFIZER INC-2015029888

PATIENT
  Sex: Female

DRUGS (3)
  1. REVATIO [Suspect]
     Active Substance: SILDENAFIL CITRATE
     Dosage: UNK
  2. XALATAN [Suspect]
     Active Substance: LATANOPROST
     Dosage: UNK
  3. LYRICA [Suspect]
     Active Substance: PREGABALIN
     Dosage: UNK

REACTIONS (1)
  - Mental disorder [Unknown]
